FAERS Safety Report 12829870 (Version 2)
Quarter: 2017Q3

REPORT INFORMATION
  Report Type: Spontaneous
  Country: US (occurrence: US)
  Receive Date: 20161007
  Receipt Date: 20170928
  Transmission Date: 20171127
  Serious: No
  Sender: FDA-Public Use
  Company Number: US-SA-2016SA077313

PATIENT
  Age: 60 Year
  Sex: Female

DRUGS (28)
  1. IRON [Concomitant]
     Active Substance: IRON
  2. MAGNESIUM [Concomitant]
     Active Substance: MAGNESIUM
  3. REPAGLINIDE. [Concomitant]
     Active Substance: REPAGLINIDE
  4. ALEVE [Concomitant]
     Active Substance: NAPROXEN SODIUM
  5. VITAMIN D [Concomitant]
     Active Substance: CHOLECALCIFEROL
  6. METFORMIN HYDROCHLORIDE. [Concomitant]
     Active Substance: METFORMIN HYDROCHLORIDE
  7. OXYCONTIN [Concomitant]
     Active Substance: OXYCODONE HYDROCHLORIDE
  8. TRAZODONE HYDROCHLORIDE. [Concomitant]
     Active Substance: TRAZODONE HYDROCHLORIDE
  9. MODAFINIL. [Concomitant]
     Active Substance: MODAFINIL
  10. CLONAZEPAM. [Concomitant]
     Active Substance: CLONAZEPAM
  11. SULINDAC. [Concomitant]
     Active Substance: SULINDAC
  12. MYRBETRIQ [Concomitant]
     Active Substance: MIRABEGRON
  13. SYNTHROID [Concomitant]
     Active Substance: LEVOTHYROXINE SODIUM
  14. VITAMIN B COMPLEX [Concomitant]
     Active Substance: CYANOCOBALAMIN\DEXPANTHENOL\NIACINAMIDE\PYRIDOXINE HYDROCHLORIDE\RIBOFLAVIN 5^-PHOSPHATE SODIUM\THIAMINE HYDROCHLORIDE\VITAMIN B COMPLEX
  15. URIBEL [Concomitant]
     Active Substance: HYOSCYAMINE SULFATE\METHENAMINE\METHYLENE BLUE\PHENYL SALICYLATE\SODIUM PHOSPHATE, MONOBASIC, MONOHYDRATE
  16. GABAPENTIN. [Concomitant]
     Active Substance: GABAPENTIN
  17. PROMETHAZINE HYDROCHLORIDE. [Concomitant]
     Active Substance: PROMETHAZINE HYDROCHLORIDE
  18. ZANAFLEX [Concomitant]
     Active Substance: TIZANIDINE HYDROCHLORIDE
  19. TORSEMIDE. [Concomitant]
     Active Substance: TORSEMIDE
  20. NAMENDA [Concomitant]
     Active Substance: MEMANTINE HYDROCHLORIDE
  21. AUBAGIO [Suspect]
     Active Substance: TERIFLUNOMIDE
     Indication: MULTIPLE SCLEROSIS
     Route: 048
  22. CALCIUM [Concomitant]
     Active Substance: CALCIUM
  23. PROTONIX [Concomitant]
     Active Substance: PANTOPRAZOLE SODIUM
  24. LYRICA [Concomitant]
     Active Substance: PREGABALIN
  25. EFFEXOR [Concomitant]
     Active Substance: VENLAFAXINE HYDROCHLORIDE
  26. LIVALO [Concomitant]
     Active Substance: PITAVASTATIN CALCIUM
  27. ASPIRIN. [Concomitant]
     Active Substance: ASPIRIN
  28. VITAMIN D3 [Concomitant]
     Active Substance: CHOLECALCIFEROL

REACTIONS (6)
  - Headache [Unknown]
  - Fall [Unknown]
  - Hepatic enzyme abnormal [Unknown]
  - Fatigue [Unknown]
  - Depression [Not Recovered/Not Resolved]
  - Alopecia [Not Recovered/Not Resolved]

NARRATIVE: CASE EVENT DATE: 201606
